FAERS Safety Report 10351057 (Version 1)
Quarter: 2014Q3

REPORT INFORMATION
  Report Type: Spontaneous
  Country: CN (occurrence: CN)
  Receive Date: 20140730
  Receipt Date: 20140730
  Transmission Date: 20150326
  Serious: Yes (Death, Other)
  Sender: FDA-Public Use
  Company Number: PHHY2014CN092010

PATIENT
  Age: 49 Year
  Sex: Male

DRUGS (11)
  1. CISPLATIN. [Suspect]
     Active Substance: CISPLATIN
     Indication: SMALL CELL LUNG CANCER
     Dosage: 60 MG/DAY
     Route: 041
  2. IRINOTECAN [Suspect]
     Active Substance: IRINOTECAN
     Indication: SMALL CELL LUNG CANCER
     Dosage: 80 MG, UNK
     Route: 041
  3. ETOPOSIDE. [Suspect]
     Active Substance: ETOPOSIDE
     Indication: SMALL CELL LUNG CANCER
     Dosage: 100 MG, UNK
     Route: 041
  4. RADIATION THERAPY [Concomitant]
     Active Substance: RADIATION THERAPY
     Dosage: 50GY/25 FRACTIONS
  5. RADIATION THERAPY [Concomitant]
     Active Substance: RADIATION THERAPY
     Dosage: 30GY/15 FRACTIONS
  6. CARBOPLATIN. [Suspect]
     Active Substance: CARBOPLATIN
     Indication: SMALL CELL LUNG CANCER
     Dosage: 500 MG, UNK
     Route: 041
  7. CARBOPLATIN. [Suspect]
     Active Substance: CARBOPLATIN
     Dosage: 100 MG, THREE TIMES
     Route: 041
  8. CARBOPLATIN. [Suspect]
     Active Substance: CARBOPLATIN
     Dosage: 100 MG, UNK
     Route: 041
  9. TOPOTECAN [Suspect]
     Active Substance: TOPOTECAN\TOPOTECAN HYDROCHLORIDE
     Indication: SMALL CELL LUNG CANCER
     Dosage: 2 MG, UNK
     Route: 041
  10. TOPOTECAN [Suspect]
     Active Substance: TOPOTECAN\TOPOTECAN HYDROCHLORIDE
     Dosage: 1.2 MG, UNK
     Route: 041
  11. RADIATION THERAPY [Concomitant]
     Active Substance: RADIATION THERAPY
     Dosage: 56GY/28 FRACTIONS
     Dates: start: 200510

REACTIONS (3)
  - Sleep apnoea syndrome [Fatal]
  - Drug resistance [Unknown]
  - White blood cell count decreased [Unknown]
